FAERS Safety Report 12845017 (Version 2)
Quarter: 2016Q4

REPORT INFORMATION
  Report Type: Spontaneous
  Country: US (occurrence: US)
  Receive Date: 20161013
  Receipt Date: 20161104
  Transmission Date: 20170207
  Serious: Yes (Other)
  Sender: FDA-Public Use
  Company Number: US-PFIZER INC-2015384884

PATIENT
  Age: 85 Year
  Sex: Female
  Weight: 67.59 kg

DRUGS (4)
  1. PREDNISONE. [Concomitant]
     Active Substance: PREDNISONE
     Indication: ARTHRALGIA
  2. REVATIO [Suspect]
     Active Substance: SILDENAFIL CITRATE
     Indication: PULMONARY HYPERTENSION
     Dosage: 40 MG, 3X/DAY
     Route: 048
     Dates: start: 2011
  3. REVATIO [Suspect]
     Active Substance: SILDENAFIL CITRATE
     Indication: DYSPNOEA
  4. PREDNISONE. [Concomitant]
     Active Substance: PREDNISONE
     Indication: RHEUMATOID ARTHRITIS
     Dosage: 10MG TABLETS, 3 TABLETS BY MOUTH DAILY
     Route: 048

REACTIONS (7)
  - Balance disorder [Unknown]
  - Cerebrovascular accident [Recovered/Resolved with Sequelae]
  - Visual field defect [Not Recovered/Not Resolved]
  - Drug dose omission [Recovered/Resolved]
  - Speech disorder [Unknown]
  - Gait disturbance [Unknown]
  - Product use issue [Not Recovered/Not Resolved]

NARRATIVE: CASE EVENT DATE: 2011
